FAERS Safety Report 8232947-2 (Version None)
Quarter: 2012Q1

REPORT INFORMATION
  Report Type: 
  Country: None (occurrence: None)
  Receive Date: 20120325
  Receipt Date: 20120322
  Transmission Date: 20120608
  Serious: Yes (Other)
  Sender: FDA-Public Use
  Company Number: AU-BAYER-2012-027709

PATIENT
  Age: 22 Year
  Sex: Female

DRUGS (2)
  1. CLOTRIMAZOLE [Suspect]
     Indication: VULVOVAGINAL CANDIDIASIS
     Dosage: UNK
     Dates: start: 20120318
  2. LEVONORGESTREL AND ETHINYL ESTRADIOL [Concomitant]
     Dosage: UNK
     Route: 048
     Dates: start: 20120101

REACTIONS (4)
  - MALAISE [None]
  - BREAST TENDERNESS [None]
  - VAGINAL HAEMORRHAGE [None]
  - LYMPHADENOPATHY [None]
